FAERS Safety Report 12702883 (Version 3)
Quarter: 2016Q3

REPORT INFORMATION
  Report Type: Report from Study
  Country: US (occurrence: US)
  Receive Date: 20160831
  Receipt Date: 20160923
  Transmission Date: 20161109
  Serious: Yes (Hospitalization, Other)
  Sender: FDA-Public Use
  Company Number: US-GILEAD-2016-0230725

PATIENT
  Age: 53 Year
  Sex: Female

DRUGS (2)
  1. SOFOSBUVIR [Suspect]
     Active Substance: SOFOSBUVIR
     Indication: CHRONIC HEPATITIS C
     Dosage: 400 MG, UNK
     Route: 048
     Dates: start: 20160503
  2. RIBASPHERE [Concomitant]
     Active Substance: RIBAVIRIN
     Indication: CHRONIC HEPATITIS C
     Dosage: UNK
     Route: 065
     Dates: start: 20160503

REACTIONS (20)
  - Ocular icterus [Unknown]
  - Blood pressure increased [Unknown]
  - Bone pain [Unknown]
  - Confusional state [Unknown]
  - Ammonia increased [Unknown]
  - Pyrexia [Unknown]
  - Weight decreased [Unknown]
  - Asthenia [Unknown]
  - Hepatic cirrhosis [Unknown]
  - Pulmonary oedema [Unknown]
  - Feeling abnormal [Unknown]
  - Abdominal distension [Unknown]
  - Tremor [Unknown]
  - Chills [Unknown]
  - Amnesia [Unknown]
  - Lethargy [Unknown]
  - Ocular hyperaemia [Unknown]
  - Protein total decreased [Unknown]
  - Activities of daily living impaired [Unknown]
  - Fluid retention [Unknown]
